FAERS Safety Report 20709719 (Version 1)
Quarter: 2022Q2

REPORT INFORMATION
  Report Type: Spontaneous
  Country: US (occurrence: None)
  Receive Date: 20220413
  Receipt Date: 20220413
  Transmission Date: 20220720
  Serious: No
  Sender: FDA-Public Use
  Company Number: None

PATIENT
  Age: 67 Year
  Sex: Female
  Weight: 94.5 kg

DRUGS (8)
  1. RECLAST [Suspect]
     Active Substance: ZOLEDRONIC ACID
     Indication: Osteoporosis
     Dosage: FREQUENCY : EVERY YEAR;?
     Route: 042
     Dates: start: 20220404
  2. POTASSIUM [Concomitant]
     Active Substance: POTASSIUM
  3. LOSARTAN [Concomitant]
     Active Substance: LOSARTAN
  4. BENADRYL [Concomitant]
     Active Substance: DIPHENHYDRAMINE HYDROCHLORIDE
  5. Vitamins B12 [Concomitant]
  6. VITAMIN D [Concomitant]
     Active Substance: VITAMIN D NOS
  7. CALCIUM [Concomitant]
     Active Substance: CALCIUM
  8. VITAMINS [Concomitant]
     Active Substance: VITAMINS

REACTIONS (10)
  - Pyrexia [None]
  - Diarrhoea [None]
  - Fatigue [None]
  - Pain [None]
  - Back pain [None]
  - Loss of personal independence in daily activities [None]
  - Abdominal pain [None]
  - Peripheral swelling [None]
  - Joint swelling [None]
  - Infusion related reaction [None]

NARRATIVE: CASE EVENT DATE: 20220404
